FAERS Safety Report 5110730-4 (Version None)
Quarter: 2006Q3

REPORT INFORMATION
  Report Type: 
  Country: None (occurrence: None)
  Receive Date: 20060919
  Receipt Date: 20060910
  Transmission Date: 20061208
  Serious: Yes (Other)
  Sender: FDA-Public Use
  Company Number: 2006110320

PATIENT
  Age: 6 Year
  Sex: Male
  Weight: 27.2158 kg

DRUGS (1)
  1. ZOLOFT [Suspect]
     Indication: GENERALISED ANXIETY DISORDER
     Dosage: 1 ML (1 ML, 1 IN 1 D), UNKNOWN
     Dates: start: 20060814

REACTIONS (5)
  - APATHY [None]
  - EATING DISORDER [None]
  - FATIGUE [None]
  - FLUID INTAKE REDUCED [None]
  - MOVEMENT DISORDER [None]
